FAERS Safety Report 16548035 (Version 2)
Quarter: 2021Q3

REPORT INFORMATION
  Report Type: Spontaneous
  Country: US (occurrence: US)
  Receive Date: 20190709
  Receipt Date: 20210709
  Transmission Date: 20211014
  Serious: Yes (Other)
  Sender: FDA-Public Use
  Company Number: US-ASTELLAS-2019US012472

PATIENT
  Age: 90 Year
  Sex: Female
  Weight: 27 kg

DRUGS (1)
  1. MYRBETRIQ [Suspect]
     Active Substance: MIRABEGRON
     Indication: PRODUCT USED FOR UNKNOWN INDICATION
     Route: 065

REACTIONS (4)
  - Pharyngeal swelling [Unknown]
  - Urinary tract infection [Recovering/Resolving]
  - Lip swelling [Unknown]
  - Swollen tongue [Unknown]
